FAERS Safety Report 6783599-X (Version None)
Quarter: 2010Q2

REPORT INFORMATION
  Report Type: 
  Country: None (occurrence: None)
  Receive Date: 20100622
  Receipt Date: 20090507
  Transmission Date: 20101027
  Serious: Yes (Other)
  Sender: FDA-Public Use
  Company Number: DE-ROCHE-633068

PATIENT
  Age: 74 Year
  Sex: Female

DRUGS (1)
  1. BONIVA [Suspect]
     Indication: OSTEOPOROSIS
     Route: 042
     Dates: start: 20090504, end: 20090504

REACTIONS (3)
  - DERMATITIS [None]
  - DRUG ADMINISTRATION ERROR [None]
  - MYOSITIS [None]
